FAERS Safety Report 26178839 (Version 1)
Quarter: 2025Q4

REPORT INFORMATION
  Report Type: Spontaneous
  Country: US (occurrence: US)
  Receive Date: 20251219
  Receipt Date: 20251219
  Transmission Date: 20260119
  Serious: No
  Sender: SANOFI AVENTIS
  Company Number: US-SANOFI-02755234

PATIENT
  Age: 81 Year
  Sex: Male

DRUGS (1)
  1. DUPIXENT [Suspect]
     Active Substance: DUPILUMAB
     Indication: Eczema
     Dosage: 300 MG QOW
     Route: 065

REACTIONS (5)
  - Dry skin [Unknown]
  - Peripheral swelling [Unknown]
  - Skin exfoliation [Unknown]
  - Erythema [Unknown]
  - Pain of skin [Unknown]
